FAERS Safety Report 7851459-9 (Version None)
Quarter: 2011Q4

REPORT INFORMATION
  Report Type: 
  Country: None (occurrence: None)
  Receive Date: 20111026
  Receipt Date: 20111020
  Transmission Date: 20120403
  Serious: Yes (Hospitalization, Disabling, Congenital Anomaly)
  Sender: FDA-Public Use
  Company Number: DE-SANOFI-AVENTIS-2011SA069638

PATIENT
  Age: 75 Year
  Sex: Female
  Weight: 70 kg

DRUGS (4)
  1. LEFLUNOMIDE [Suspect]
     Indication: RHEUMATOID ARTHRITIS
     Route: 048
     Dates: start: 20030101, end: 20100101
  2. CANDESARTAN CILEXETIL [Concomitant]
     Route: 065
     Dates: start: 20100301
  3. TOCILIZUMAB [Suspect]
     Indication: RHEUMATOID ARTHRITIS
     Route: 042
     Dates: start: 20091127, end: 20100224
  4. LEVOTHYROXINE SODIUM [Concomitant]
     Dosage: 8 UG (75 UG)
     Route: 048
     Dates: start: 20020101

REACTIONS (3)
  - OSTEOARTHRITIS [None]
  - GAMMA-GLUTAMYLTRANSFERASE INCREASED [None]
  - POST PROCEDURAL INFECTION [None]
